FAERS Safety Report 20084026 (Version 4)
Quarter: 2024Q4

REPORT INFORMATION
  Report Type: Spontaneous
  Country: US (occurrence: US)
  Receive Date: 20211118
  Receipt Date: 20241015
  Transmission Date: 20250115
  Serious: No
  Sender: BRISTOL-MYERS SQUIBB COMPANY
  Company Number: US-BRISTOL-MYERS SQUIBB COMPANY-BMS-2021-120798

PATIENT
  Age: 73 Year
  Sex: Female
  Weight: 41.723 kg

DRUGS (2)
  1. ORENCIA [Suspect]
     Active Substance: ABATACEPT
     Indication: Rheumatoid arthritis
     Route: 058
     Dates: start: 202110
  2. ORENCIA [Suspect]
     Active Substance: ABATACEPT
     Indication: Illness
     Route: 058
     Dates: start: 20211229

REACTIONS (3)
  - Device mechanical issue [Unknown]
  - Device leakage [Unknown]
  - Incorrect dose administered [Unknown]
